FAERS Safety Report 17029817 (Version 2)
Quarter: 2021Q4

REPORT INFORMATION
  Report Type: Spontaneous
  Country: US (occurrence: US)
  Receive Date: 20191114
  Receipt Date: 20211125
  Transmission Date: 20220303
  Serious: Yes (Other)
  Sender: FDA-Public Use
  Company Number: US-SUN PHARMACEUTICAL INDUSTRIES LTD-2019R1-226409

PATIENT
  Age: 71 Year
  Sex: Male

DRUGS (2)
  1. CARVEDILOL [Suspect]
     Active Substance: CARVEDILOL
     Indication: Hypotension
     Dosage: 6.25 MILLIGRAM, BID (TWO DOSES OF MEDICATION, RECEIVED 11 HR APART)
     Route: 048
  2. CARVEDILOL [Suspect]
     Active Substance: CARVEDILOL
     Dosage: 6.25 MILLIGRAM, Q12H
     Route: 048

REACTIONS (2)
  - Shock [Recovered/Resolved]
  - Toxicity to various agents [Unknown]
